FAERS Safety Report 5486672-1 (Version None)
Quarter: 2007Q3

REPORT INFORMATION
  Report Type: 
  Country: None (occurrence: None)
  Receive Date: 20070925
  Receipt Date: 20070703
  Transmission Date: 20080115
  Serious: No
  Sender: FDA-Public Use
  Company Number: 2007US001228

PATIENT
  Age: 71 Year
  Sex: Female

DRUGS (7)
  1. VESICARE [Suspect]
     Indication: URINARY INCONTINENCE
     Dosage: 5 MG
     Dates: start: 20070701, end: 20070705
  2. VESICARE [Suspect]
     Indication: URINARY INCONTINENCE
     Dosage: 5 MG
  3. MEDROL [Concomitant]
  4. PLAQUENIL [Concomitant]
  5. ASPIRIN [Concomitant]
  6. FOSAMAX [Concomitant]
  7. PETRIL (CLONAZEPAM) [Concomitant]

REACTIONS (2)
  - DRUG INEFFECTIVE [None]
  - PERINEAL PAIN [None]
